FAERS Safety Report 21909273 (Version 2)
Quarter: 2023Q1

REPORT INFORMATION
  Report Type: Spontaneous
  Country: CH (occurrence: None)
  Receive Date: 20230125
  Receipt Date: 20230126
  Transmission Date: 20230418
  Serious: Yes (Hospitalization)
  Sender: FDA-Public Use
  Company Number: 2023A012589

PATIENT
  Age: 79 Year
  Sex: Female

DRUGS (1)
  1. FASLODEX [Suspect]
     Active Substance: FULVESTRANT
     Indication: Breast cancer metastatic
     Route: 030
     Dates: start: 20221214, end: 20221214

REACTIONS (5)
  - Guillain-Barre syndrome [Recovering/Resolving]
  - Paraparesis [Recovering/Resolving]
  - Paraesthesia [Recovering/Resolving]
  - Paraparesis [Unknown]
  - Circulatory collapse [Unknown]

NARRATIVE: CASE EVENT DATE: 20221214
